FAERS Safety Report 7145248-0 (Version None)
Quarter: 2010Q4

REPORT INFORMATION
  Report Type: 
  Country: None (occurrence: None)
  Receive Date: 20101124
  Receipt Date: 20101115
  Transmission Date: 20110411
  Serious: Yes (Other)
  Sender: FDA-Public Use
  Company Number: 2010-3485

PATIENT
  Age: 41 Year
  Sex: Male
  Weight: 94 kg

DRUGS (1)
  1. SOMATULINE DEPOT [Suspect]
     Indication: ACROMEGALY
     Dosage: 120 MG (120 MG, 1 IN 6 WK), SUBCUTANEOUS
     Route: 058
     Dates: start: 20030515

REACTIONS (3)
  - CHOLANGITIS SCLEROSING [None]
  - CHOLESTASIS [None]
  - MICROLITHIASIS [None]
